FAERS Safety Report 18412002 (Version 2)
Quarter: 2020Q4

REPORT INFORMATION
  Report Type: Spontaneous
  Country: CA (occurrence: CA)
  Receive Date: 20201021
  Receipt Date: 20201102
  Transmission Date: 20210114
  Serious: Yes (Other)
  Sender: FDA-Public Use
  Company Number: CA-JNJFOC-20201026942

PATIENT
  Age: 35 Year
  Sex: Female

DRUGS (7)
  1. CALCIUM                            /00060701/ [Concomitant]
     Active Substance: CALCIUM
     Route: 065
  2. VITAMIN D                          /00107901/ [Concomitant]
     Active Substance: ERGOCALCIFEROL
  3. INFLIXIMAB, RECOMBINANT [Suspect]
     Active Substance: INFLIXIMAB
     Indication: COLITIS ULCERATIVE
     Route: 042
  4. MEZAVANT [Concomitant]
     Active Substance: MESALAMINE
     Dosage: TABLET (DELAYED?AND EXTENDED
     Route: 065
  5. IRON [Concomitant]
     Active Substance: IRON
  6. PENTASA [Concomitant]
     Active Substance: MESALAMINE
     Route: 065
  7. PREDNISONE. [Concomitant]
     Active Substance: PREDNISONE

REACTIONS (6)
  - Drug ineffective [Unknown]
  - Diarrhoea haemorrhagic [Unknown]
  - Condition aggravated [Unknown]
  - Asthenia [Unknown]
  - Pain in extremity [Unknown]
  - Somnolence [Unknown]
